FAERS Safety Report 18881053 (Version 1)
Quarter: 2021Q1

REPORT INFORMATION
  Report Type: Spontaneous
  Country: FR (occurrence: FR)
  Receive Date: 20210211
  Receipt Date: 20210211
  Transmission Date: 20210420
  Serious: Yes (Hospitalization)
  Sender: FDA-Public Use
  Company Number: FR-PFIZER INC-2021121816

PATIENT
  Sex: Male

DRUGS (3)
  1. LYRICA [Suspect]
     Active Substance: PREGABALIN
     Indication: HERNIA PAIN
     Dosage: UNK
     Route: 065
  2. SKENAN [Suspect]
     Active Substance: MORPHINE SULFATE
     Indication: HERNIA PAIN
     Route: 065
  3. ACTISKENAN [Suspect]
     Active Substance: MORPHINE SULFATE
     Indication: HERNIA PAIN
     Route: 065

REACTIONS (1)
  - Drug dependence [Recovered/Resolved]
